FAERS Safety Report 10371368 (Version 1)
Quarter: 2014Q3

REPORT INFORMATION
  Report Type: Spontaneous
  Country: AR (occurrence: AR)
  Receive Date: 20140808
  Receipt Date: 20140808
  Transmission Date: 20150326
  Serious: Yes (Other)
  Sender: FDA-Public Use
  Company Number: AR-AMGEN-ARGSP2014060251

PATIENT
  Age: 68 Year
  Sex: Female

DRUGS (1)
  1. ENBREL [Suspect]
     Active Substance: ETANERCEPT
     Indication: RHEUMATOID ARTHRITIS
     Dosage: 50 MG, WEEKLY
     Route: 065
     Dates: start: 20111015

REACTIONS (4)
  - Fall [Recovering/Resolving]
  - Varicose vein ruptured [Recovering/Resolving]
  - Varicose vein [Unknown]
  - Joint injury [Recovering/Resolving]

NARRATIVE: CASE EVENT DATE: 20140515
